FAERS Safety Report 15206674 (Version 8)
Quarter: 2020Q1

REPORT INFORMATION
  Report Type: Spontaneous
  Country: US (occurrence: US)
  Receive Date: 20180727
  Receipt Date: 20200303
  Transmission Date: 20200409
  Serious: Yes (Hospitalization, Other)
  Sender: FDA-Public Use
  Company Number: US-PFIZER INC-2018303824

PATIENT
  Age: 71 Year
  Sex: Male
  Weight: 86.18 kg

DRUGS (9)
  1. LYRICA [Suspect]
     Active Substance: PREGABALIN
     Indication: NECK PAIN
     Dosage: 150 MG, 2X/DAY
     Dates: start: 201912
  2. LYRICA [Suspect]
     Active Substance: PREGABALIN
     Indication: NERVE INJURY
  3. VALSARTAN. [Concomitant]
     Active Substance: VALSARTAN
     Indication: BLOOD PRESSURE ABNORMAL
     Dosage: UNK
     Dates: start: 201609
  4. LYRICA [Suspect]
     Active Substance: PREGABALIN
     Indication: NEURALGIA
     Dosage: 10 MG, 2X/DAY
     Route: 048
     Dates: start: 201612
  5. LYRICA [Suspect]
     Active Substance: PREGABALIN
     Indication: EXOSTOSIS
     Dosage: 75 MG, 2X/DAY
     Route: 048
     Dates: start: 2017
  6. LYRICA [Suspect]
     Active Substance: PREGABALIN
     Indication: ARTHRALGIA
     Dosage: 150 MG, 2X/DAY
     Route: 048
     Dates: start: 201910
  7. LYRICA [Suspect]
     Active Substance: PREGABALIN
     Indication: VERTEBRAL OSTEOPHYTE
     Dosage: 150 MG, 2X/DAY
     Dates: start: 201708
  8. LYRICA [Suspect]
     Active Substance: PREGABALIN
     Indication: INTERVERTEBRAL DISC PROTRUSION
     Dosage: 150 MG, 2X/DAY
     Route: 048
     Dates: start: 201712
  9. VALSARTAN. [Concomitant]
     Active Substance: VALSARTAN
     Dosage: UNK
     Dates: start: 201612

REACTIONS (5)
  - Therapeutic response unexpected [Recovered/Resolved]
  - Pre-existing condition improved [Recovered/Resolved]
  - Prescribed underdose [Unknown]
  - Drug use disorder [Recovered/Resolved]
  - Weight decreased [Recovered/Resolved]

NARRATIVE: CASE EVENT DATE: 201612
